FAERS Safety Report 4899820-9 (Version None)
Quarter: 2006Q1

REPORT INFORMATION
  Report Type: 
  Country: None (occurrence: None)
  Receive Date: 20060118
  Receipt Date: 20051019
  Transmission Date: 20060701
  Serious: No
  Sender: FDA-Public Use
  Company Number: 2005002054

PATIENT
  Sex: Male

DRUGS (8)
  1. TARCEVA [Suspect]
     Indication: RENAL CELL CARCINOMA STAGE UNSPECIFIED
     Dosage: 150 MG (QD), ORAL
     Route: 048
     Dates: start: 20050830, end: 20051013
  2. LASIX [Concomitant]
  3. POTASSIUM (POTASSIUM) [Concomitant]
  4. OXYCODONE (OXYCODONE) [Concomitant]
  5. MEGACE (MESESTROL ACETATE) [Concomitant]
  6. COUMADIN [Concomitant]
  7. LEUKINE [Concomitant]
  8. BEVACIZUMAB) [Concomitant]

REACTIONS (2)
  - DERMATITIS BULLOUS [None]
  - RASH [None]
